FAERS Safety Report 19824557 (Version 1)
Quarter: 2021Q3

REPORT INFORMATION
  Report Type: Spontaneous
  Country: US (occurrence: US)
  Receive Date: 20210913
  Receipt Date: 20210913
  Transmission Date: 20211014
  Serious: No
  Sender: FDA-Public Use
  Company Number: US-LUNDBECK-DKLU3038122

PATIENT
  Age: 8 Month
  Sex: Female

DRUGS (3)
  1. SABRIL [Suspect]
     Active Substance: VIGABATRIN
     Indication: INFANTILE SPASMS
     Dosage: FOR 3 DAYS
     Route: 048
     Dates: start: 20210809
  2. SABRIL [Suspect]
     Active Substance: VIGABATRIN
     Dosage: FOR 3 DAYS
     Route: 048
     Dates: start: 20210812
  3. SABRIL [Suspect]
     Active Substance: VIGABATRIN
     Route: 048
     Dates: start: 20210815

REACTIONS (1)
  - Tooth discolouration [Not Recovered/Not Resolved]
